FAERS Safety Report 6956806-8 (Version None)
Quarter: 2010Q3

REPORT INFORMATION
  Report Type: 
  Country: None (occurrence: None)
  Receive Date: 20100826
  Receipt Date: 20100813
  Transmission Date: 20110219
  Serious: Yes (Hospitalization)
  Sender: FDA-Public Use
  Company Number: 2010MA001818

PATIENT
  Age: 47 Year
  Sex: Male

DRUGS (11)
  1. FEVERALL [Suspect]
  2. FENTANYL CITRATE [Concomitant]
  3. ROSUVASTATIN [Concomitant]
  4. ZOPICLONE [Concomitant]
  5. TAMSULOSIN HCL [Concomitant]
  6. SERTRALINE HYDROCHLORIDE [Concomitant]
  7. AMITRIPTYLINE HYDROCHLORIDE [Concomitant]
  8. LYRICA [Concomitant]
  9. FUROSEMIDE [Concomitant]
  10. DIAZEPAM [Concomitant]
  11. OMEPRAZOLE [Concomitant]

REACTIONS (3)
  - DRUG EFFECT DECREASED [None]
  - OVERDOSE [None]
  - PARANOIA [None]
